FAERS Safety Report 9775946 (Version 5)
Quarter: 2015Q1

REPORT INFORMATION
  Report Type: Spontaneous
  Country: US (occurrence: US)
  Receive Date: 20131220
  Receipt Date: 20150311
  Transmission Date: 20150721
  Serious: Yes (Other)
  Sender: FDA-Public Use
  Company Number: US-BAYER-2013-154551

PATIENT
  Age: 36 Year
  Sex: Female
  Weight: 91 kg

DRUGS (2)
  1. MIRENA [Suspect]
     Active Substance: LEVONORGESTREL
     Indication: CONTRACEPTION
     Dosage: 20 MCG/24HR, CONT
     Route: 015
     Dates: start: 20091210, end: 201106
  2. CITALOPRAM [Concomitant]
     Active Substance: CITALOPRAM HYDROBROMIDE
     Dosage: 20 MG DAILY

REACTIONS (13)
  - Discomfort [None]
  - Uterine scar [None]
  - Depression [None]
  - Dyspareunia [None]
  - Adhesion [None]
  - Abdominal discomfort [None]
  - Uterine perforation [None]
  - Fallopian tube disorder [None]
  - Injury [None]
  - Abdominal pain [None]
  - Emotional distress [None]
  - Abdominal pain upper [None]
  - Anxiety [None]

NARRATIVE: CASE EVENT DATE: 2011
